FAERS Safety Report 24017005 (Version 1)
Quarter: 2024Q2

REPORT INFORMATION
  Report Type: Spontaneous
  Country: US (occurrence: US)
  Receive Date: 20240626
  Receipt Date: 20240626
  Transmission Date: 20240716
  Serious: No
  Sender: FDA-Public Use
  Company Number: US-SA-SAC20240620000300

PATIENT
  Age: 15 Year
  Sex: Female
  Weight: 54.88 kg

DRUGS (1)
  1. DUPIXENT [Suspect]
     Active Substance: DUPILUMAB
     Indication: Dermatitis atopic
     Dosage: DOSE AND ROUTE PRESCRIBED: 200 MG UNDER THE SKIN FREQUENCY: EVERY 2 WEEKS
     Route: 058
     Dates: end: 202403

REACTIONS (3)
  - Injection site pain [Not Recovered/Not Resolved]
  - Procedural anxiety [Not Recovered/Not Resolved]
  - Acne [Not Recovered/Not Resolved]
